FAERS Safety Report 9341470 (Version 1)
Quarter: 2013Q2

REPORT INFORMATION
  Report Type: Spontaneous
  Country: CN (occurrence: CN)
  Receive Date: 20130611
  Receipt Date: 20130611
  Transmission Date: 20140414
  Serious: Yes (Hospitalization)
  Sender: FDA-Public Use
  Company Number: CN-JNJFOC-20130603155

PATIENT
  Age: 45 Year
  Sex: Female

DRUGS (3)
  1. REMICADE [Suspect]
     Indication: RHEUMATOID ARTHRITIS
     Dosage: 100 MGX1
     Route: 042
     Dates: start: 20130215
  2. REMICADE [Suspect]
     Indication: RHEUMATOID ARTHRITIS
     Dosage: 100 MGX1
     Route: 042
     Dates: start: 201302
  3. METHOTREXATE [Concomitant]
     Route: 065

REACTIONS (1)
  - Lupus-like syndrome [Unknown]
